FAERS Safety Report 10528675 (Version 2)
Quarter: 2014Q4

REPORT INFORMATION
  Report Type: Spontaneous
  Country: AU (occurrence: AU)
  Receive Date: 20141020
  Receipt Date: 20141118
  Transmission Date: 20150528
  Serious: Yes (Other)
  Sender: FDA-Public Use
  Company Number: AU-BAXTER-2014BAX061045

PATIENT

DRUGS (1)
  1. BAXTER 0.9% SODIUM CHLORIDE 9G_L INJECTION BP BAG AHB1324 [Suspect]
     Active Substance: SODIUM CHLORIDE
     Indication: OCCUPATIONAL EXPOSURE TO PRODUCT
     Route: 061

REACTIONS (4)
  - Electric shock [Recovered/Resolved]
  - Product container issue [Recovered/Resolved]
  - Heart rate increased [Recovered/Resolved]
  - Occupational exposure to product [Recovered/Resolved]

NARRATIVE: CASE EVENT DATE: 20141009
